FAERS Safety Report 5110180-0 (Version None)
Quarter: 2006Q3

REPORT INFORMATION
  Report Type: 
  Country: None (occurrence: None)
  Receive Date: 20060921
  Receipt Date: 20060913
  Transmission Date: 20061208
  Serious: Yes (Hospitalization)
  Sender: FDA-Public Use
  Company Number: ES-AVENTIS-200619612GDDC

PATIENT
  Age: 74 Year
  Sex: Male

DRUGS (3)
  1. GLIMEPIRIDE [Suspect]
     Indication: DIABETES MELLITUS
     Route: 048
     Dates: end: 20060629
  2. VALSARTAN AND HYDROCHLOROTHIAZIDE [Suspect]
     Indication: ESSENTIAL HYPERTENSION
     Route: 048
     Dates: end: 20060629
  3. METFORMIN [Concomitant]
     Indication: DIABETES MELLITUS
     Route: 048

REACTIONS (3)
  - HYPONATRAEMIA [None]
  - INAPPROPRIATE ANTIDIURETIC HORMONE SECRETION [None]
  - RENAL FAILURE ACUTE [None]
